FAERS Safety Report 15449275 (Version 2)
Quarter: 2018Q4

REPORT INFORMATION
  Report Type: Report from Study
  Country: US (occurrence: US)
  Receive Date: 20181001
  Receipt Date: 20181004
  Transmission Date: 20190204
  Serious: No
  Sender: FDA-Public Use
  Company Number: US-SHIRE-US201837172

PATIENT
  Sex: Female
  Weight: 45.26 kg

DRUGS (1)
  1. GATTEX [Suspect]
     Active Substance: TEDUGLUTIDE\WATER
     Indication: SHORT-BOWEL SYNDROME
     Dosage: 0.15 ML, 1X/DAY:QD
     Route: 058

REACTIONS (2)
  - Inappropriate schedule of product administration [Unknown]
  - Laboratory test abnormal [Unknown]
